FAERS Safety Report 7285252-5 (Version None)
Quarter: 2011Q1

REPORT INFORMATION
  Report Type: 
  Country: None (occurrence: None)
  Receive Date: 20110210
  Receipt Date: 20110121
  Transmission Date: 20110831
  Serious: No
  Sender: FDA-Public Use
  Company Number: US-B.I. PHARMACEUTICALS,INC./RIDGEFIELD-2011-BP-00152BP

PATIENT
  Age: 68 Year
  Sex: Female

DRUGS (12)
  1. PANTOPRAZOLE [Concomitant]
     Indication: GASTROOESOPHAGEAL REFLUX DISEASE
     Route: 048
     Dates: start: 20040101
  2. PRADAXA [Suspect]
     Indication: ATRIAL FIBRILLATION
     Dosage: 300 MG
     Route: 048
     Dates: start: 20101221, end: 20101230
  3. NISEDIAC CC [Concomitant]
     Indication: CARDIAC DISORDER
  4. HYDROCHLOROTHIAZIDE [Concomitant]
     Indication: HYPERTENSION
     Dosage: 12.5 MG
     Route: 048
     Dates: start: 20090101
  5. SIMVASTATIN [Concomitant]
     Indication: BLOOD CHOLESTEROL INCREASED
     Dosage: 80 MG
     Route: 048
     Dates: start: 20050101
  6. TRICOR [Concomitant]
     Indication: BLOOD CHOLESTEROL INCREASED
     Dosage: 145 MG
     Route: 048
     Dates: start: 20050101
  7. BENADRYL [Concomitant]
     Indication: HYPERSENSITIVITY
  8. GLYCOLAX [Concomitant]
     Indication: INTESTINAL FUNCTIONAL DISORDER
  9. LOSARTAN POTASSIUM [Concomitant]
     Indication: HYPERTENSION
     Dosage: 100 MG
     Route: 048
     Dates: start: 20040101
  10. HYDROCHLOROTHIAZIDE [Concomitant]
     Indication: FLUID RETENTION
  11. CARVEDILOL [Concomitant]
     Indication: CARDIAC DISORDER
     Dosage: 25 MG
     Route: 048
     Dates: start: 20090101
  12. NIFEDIPINE [Concomitant]
     Dosage: 20 MG
     Route: 048
     Dates: start: 20040101

REACTIONS (3)
  - EPISTAXIS [None]
  - RECTAL HAEMORRHAGE [None]
  - BRONCHITIS [None]
